FAERS Safety Report 7314522-7 (Version None)
Quarter: 2011Q1

REPORT INFORMATION
  Report Type: 
  Country: None (occurrence: None)
  Receive Date: 20110225
  Receipt Date: 20100920
  Transmission Date: 20110831
  Serious: No
  Sender: FDA-Public Use
  Company Number: US-MYLANLABS-2010S1017428

PATIENT
  Age: 35 Year
  Sex: Female

DRUGS (2)
  1. AMNESTEEM [Suspect]
     Indication: ACNE
     Route: 048
     Dates: start: 20100501, end: 20100816
  2. AMNESTEEM [Suspect]
     Route: 048
     Dates: start: 20100520, end: 20100816

REACTIONS (1)
  - ARTHRALGIA [None]
